FAERS Safety Report 8849168 (Version 5)
Quarter: 2014Q1

REPORT INFORMATION
  Report Type: Spontaneous
  Country: FR (occurrence: FR)
  Receive Date: 20121019
  Receipt Date: 20140124
  Transmission Date: 20141002
  Serious: Yes (Hospitalization, Other)
  Sender: FDA-Public Use
  Company Number: PHHY2012FR093203

PATIENT
  Age: 33 Year
  Sex: Female

DRUGS (77)
  1. CERTICAN [Suspect]
     Dosage: 0.75 MG BID
     Dates: start: 2006
  2. CERTICAN [Interacting]
     Dosage: UNK
     Dates: end: 20110125
  3. PROGRAF [Interacting]
     Dosage: 1 MG, BID
     Dates: start: 2006
  4. PROGRAF [Interacting]
     Dosage: UNK
     Dates: end: 20110125
  5. PROGRAF [Interacting]
     Dosage: 0.5 MG, BID
     Dates: start: 20110510
  6. PROGRAF [Interacting]
     Dosage: 1 MG, BID
  7. PROGRAF [Interacting]
     Dosage: 3.5 MG PER DAY
  8. PROGRAF [Interacting]
     Dosage: 1 MG, BID
     Dates: start: 20111215
  9. PROGRAF [Interacting]
     Dosage: 1 MG, BID
     Dates: start: 20120126
  10. PROGRAF [Interacting]
     Dosage: 1 MG, BID (1.5 MG IN MORNING AND 2 IN EVENING)
     Dates: start: 20120628
  11. PROGRAF [Interacting]
     Dosage: 3.5 MG, QD
     Dates: start: 20121221
  12. SPORANOX [Interacting]
     Indication: ASPERGILLUS INFECTION
     Dosage: 3 DF, QD (300MG DAILY)
  13. ZELITREX [Concomitant]
     Dosage: UNK (1/DAY)
     Dates: start: 20100920
  14. ZELITREX [Concomitant]
     Dosage: 1 DF, QD
     Dates: start: 20101221
  15. ZELITREX [Concomitant]
     Dosage: 500 MG, QD
     Dates: start: 20110304
  16. ZELITREX [Concomitant]
     Dosage: 500 MG, QD
     Dates: start: 20110314
  17. ZELITREX [Concomitant]
     Dosage: 1 DF, (ZELITRX 250 1/D)
  18. ZELITREX [Concomitant]
     Dosage: 1 DF, BID
     Dates: start: 20121221
  19. SECTRAL [Concomitant]
     Dosage: UNK (1/DAY)
     Dates: start: 20100920
  20. SECTRAL [Concomitant]
     Dosage: 1 DF, QD
     Dates: start: 20101221
  21. SECTRAL [Concomitant]
     Dosage: 400 MG, BID
     Dates: start: 20110304
  22. SECTRAL [Concomitant]
     Dosage: 400 MG, BID
     Dates: start: 20110314
  23. SECTRAL [Concomitant]
     Dosage: 400 MG, (400 MG/D)
  24. ATARAX [Concomitant]
     Dosage: 1 DF, QD
     Dates: start: 20101221
  25. BACTRIM FORTE [Concomitant]
     Dosage: 1 DF, (1 TAB EVERY SECOND DAY)
     Dates: start: 2006
  26. BACTRIM FORTE [Concomitant]
     Dosage: 400 MG, 3/W
     Dates: start: 20110304
  27. BACTRIM FORTE [Concomitant]
     Dosage: 400 MG, 3/W
     Dates: start: 20110314
  28. BACTRIM FORTE [Concomitant]
     Dosage: UNK (HALF TABLET THREE TIMES A WEEK)
     Dates: start: 20121221
  29. PARACETAMOL [Concomitant]
     Dosage: 1 G, TID
     Route: 048
     Dates: start: 20101221
  30. FOLINORAL [Concomitant]
     Dosage: 5 MG, (1 TAB EVERY TUESDAY, THURSDAY AND SATURDAY)
     Dates: start: 20101221
  31. LORAMYC [Concomitant]
     Dosage: 1 DF, QD
  32. MOPRAL [Concomitant]
     Dosage: UNK
  33. MOPRAL [Concomitant]
     Dosage: UNK
     Dates: start: 20100920
  34. SOLIRIS [Concomitant]
     Dosage: OF ONE INFUSION WEEKLY DURING 1 MONTH THEN 1 INFUSION TWICE MONTHLY
     Dates: start: 20110128
  35. SOLIRIS [Concomitant]
     Dosage: UNK UKN, UNK
     Dates: start: 201102
  36. SOLIRIS [Concomitant]
     Dosage: UNK UKN, UNK
     Dates: start: 20110317
  37. SOLIRIS [Concomitant]
     Dosage: UNK UKN, UNK
     Dates: start: 20110405
  38. SOLIRIS [Concomitant]
     Dosage: UNK UKN, UNK
     Dates: start: 20110414
  39. SOLIRIS [Concomitant]
     Dosage: UNK
     Dates: start: 20110519
  40. SOLIRIS [Concomitant]
     Dosage: UNK
     Dates: start: 20110526
  41. SOLIRIS [Concomitant]
     Dosage: UNK
     Dates: start: 20110707
  42. SOLIRIS [Concomitant]
     Dosage: UNK
     Dates: start: 20110721
  43. SOLIRIS [Concomitant]
     Dosage: UNK
     Dates: start: 20110825
  44. SOLIRIS [Concomitant]
     Dosage: UNK
     Dates: start: 20110912
  45. SOLIRIS [Concomitant]
     Dosage: UNK
     Dates: start: 20110922
  46. SOLIRIS [Concomitant]
     Dosage: UNK
     Dates: start: 20110927
  47. SOLIRIS [Concomitant]
     Dosage: UNK
     Dates: start: 20111026
  48. SOLIRIS [Concomitant]
     Dosage: UNK
     Dates: start: 20111104
  49. SOLIRIS [Concomitant]
     Dosage: UNK
     Dates: start: 20111117
  50. SOLIRIS [Concomitant]
     Dosage: UNK
     Dates: start: 20111201
  51. SOLIRIS [Concomitant]
     Dosage: UNK
     Dates: start: 20111215
  52. SOLIRIS [Concomitant]
     Dosage: UNK (EVERY THREE WEEKS)
     Dates: start: 20111221
  53. SOLIRIS [Concomitant]
     Dosage: UNK
     Dates: start: 20120217
  54. SOLIRIS [Concomitant]
     Dosage: UNK
     Dates: start: 20120712
  55. SOLIRIS [Concomitant]
     Dosage: UNK
     Dates: start: 20120912
  56. SOLIRIS [Concomitant]
     Dosage: LAST INFUSION
     Dates: start: 20121114
  57. CELLCEPT [Concomitant]
     Dosage: 1 G, BID
     Dates: start: 20110304
  58. CELLCEPT [Concomitant]
     Dosage: 1 G, BID
     Dates: start: 20110314
  59. CELLCEPT [Concomitant]
     Dosage: 1 G, BID
     Dates: start: 20110317
  60. CELLCEPT [Concomitant]
     Dosage: 750 MG, BID
  61. CELLCEPT [Concomitant]
     Dosage: 1 DF, BID 500
     Dates: start: 20121221
  62. CORTANCYL [Concomitant]
     Dosage: 5 MG, QD
     Dates: start: 2006
  63. CORTANCYL [Concomitant]
     Dosage: 60 MG, DAILY
     Dates: start: 20101221
  64. CORTANCYL [Concomitant]
     Dosage: 10 MG, UNK
     Dates: start: 20110112
  65. CORTANCYL [Concomitant]
     Dosage: 20 MG, BID
     Dates: start: 20110304
  66. CORTANCYL [Concomitant]
     Dosage: 20 MG, BID
     Dates: start: 20110314
  67. CORTANCYL [Concomitant]
     Dosage: 20 MG, BID
     Dates: start: 20110317
  68. CORTANCYL [Concomitant]
     Dosage: 10 MG, QD
  69. CORTANCYL [Concomitant]
     Dosage: 1 DF, QD, 5
     Dates: start: 20121221
  70. AMLOR [Concomitant]
     Dosage: 10 MG, QD
     Dates: start: 20110304
  71. INIPOMP [Concomitant]
     Dosage: 40 MG, QD
     Dates: start: 20110304
  72. INIPOMP [Concomitant]
     Dosage: 40 MG, QD
     Dates: start: 20110314
  73. ORACILLINE [Concomitant]
     Dosage: 1 MIU, BID
     Dates: start: 20110304
  74. ORACILLINE [Concomitant]
     Dosage: 1 MIU, BID
     Dates: start: 20110314
  75. AUGMENTIN [Concomitant]
     Dosage: UNK
  76. ARANESP [Concomitant]
     Dosage: UNK
  77. ARANESP [Concomitant]
     Dosage: 40 UG, UNK (DOSE DECREASED TO 40 UG MONTHLY)

REACTIONS (52)
  - Gastroenteritis [Recovering/Resolving]
  - Nausea [Unknown]
  - Drug interaction [Unknown]
  - Nephritic syndrome [Unknown]
  - Dehydration [Recovering/Resolving]
  - Vomiting [Unknown]
  - Thrombotic microangiopathy [Unknown]
  - Haematoma [Unknown]
  - Haemolysis [Unknown]
  - Epistaxis [Unknown]
  - Haemolytic anaemia [Unknown]
  - Anaemia [Not Recovered/Not Resolved]
  - Renal failure [Unknown]
  - Microangiopathy [Unknown]
  - Renal impairment [Unknown]
  - Lung transplant rejection [Unknown]
  - Renal ischaemia [Unknown]
  - Genetic polymorphism [Unknown]
  - Odynophagia [Unknown]
  - Myelodysplastic syndrome [Unknown]
  - Paraesthesia [Unknown]
  - Hyperglycaemia [Unknown]
  - Dyspnoea exertional [Unknown]
  - Metabolic acidosis [Not Recovered/Not Resolved]
  - Bronchitis [Unknown]
  - Cough [Unknown]
  - Pyrexia [Unknown]
  - Productive cough [Unknown]
  - Hypertension [Unknown]
  - Headache [Unknown]
  - Thrombocytopenia [Unknown]
  - Gastrointestinal disorder [Unknown]
  - Vitamin B6 deficiency [Unknown]
  - Vitamin C deficiency [Unknown]
  - Vitamin B12 deficiency [Unknown]
  - Calculus urinary [Unknown]
  - Increased bronchial secretion [Unknown]
  - Forced expiratory volume decreased [Unknown]
  - Alopecia [Unknown]
  - Muscle spasms [Unknown]
  - Hypotension [Unknown]
  - Asthenia [Unknown]
  - Rhinitis [Unknown]
  - Rhinorrhoea [Unknown]
  - Diarrhoea [Unknown]
  - Proteinuria [Unknown]
  - Immunosuppressant drug level decreased [Unknown]
  - Fungal infection [Unknown]
  - Overdose [Unknown]
  - Aspergillus infection [Unknown]
  - Dyspnoea [Unknown]
  - Acinetobacter bacteraemia [Unknown]
